FAERS Safety Report 9561935 (Version 3)
Quarter: 2013Q4

REPORT INFORMATION
  Report Type: Spontaneous
  Country: US (occurrence: US)
  Receive Date: 20130927
  Receipt Date: 20131204
  Transmission Date: 20140711
  Serious: No
  Sender: FDA-Public Use
  Company Number: US-BIOGENIDEC-2013BI064405

PATIENT
  Age: 48 Year
  Sex: Female

DRUGS (7)
  1. TECFIDERA [Suspect]
     Indication: MULTIPLE SCLEROSIS
     Route: 048
     Dates: start: 20130701, end: 201307
  2. TECFIDERA [Suspect]
     Indication: MULTIPLE SCLEROSIS
     Route: 048
     Dates: start: 20130713, end: 20130813
  3. ZOLOFT [Concomitant]
  4. CLARINEX [Concomitant]
  5. PRAVASTATIN [Concomitant]
  6. ASPIRIN [Concomitant]
  7. METOPROLOL ER [Concomitant]

REACTIONS (5)
  - Dermatitis allergic [Recovered/Resolved]
  - Flushing [Recovered/Resolved]
  - Gastric disorder [Recovered/Resolved]
  - Depressed mood [Unknown]
  - Dysmenorrhoea [Recovered/Resolved]
